FAERS Safety Report 10599358 (Version 2)
Quarter: 2014Q4

REPORT INFORMATION
  Report Type: Spontaneous
  Country: US (occurrence: US)
  Receive Date: 20141121
  Receipt Date: 20141124
  Transmission Date: 20150529
  Serious: Yes (Hospitalization)
  Sender: FDA-Public Use
  Company Number: US-BAYER-2014-166460

PATIENT
  Age: 64 Year
  Sex: Female
  Weight: 68 kg

DRUGS (1)
  1. BAYER ASPIRIN QUICK RELEASE CRYSTALS [Suspect]
     Active Substance: ASPIRIN
     Indication: CEREBROVASCULAR ACCIDENT PROPHYLAXIS
     Dosage: 1 DF, ONCE
     Route: 048
     Dates: start: 2011, end: 2011

REACTIONS (3)
  - Intentional product misuse [None]
  - Transient ischaemic attack [Recovered/Resolved]
  - Therapeutic response changed [None]

NARRATIVE: CASE EVENT DATE: 2011
